FAERS Safety Report 6976044-2 (Version None)
Quarter: 2010Q3

REPORT INFORMATION
  Report Type: 
  Country: None (occurrence: None)
  Receive Date: 20100910
  Receipt Date: 20100831
  Transmission Date: 20110219
  Serious: Yes (Other)
  Sender: FDA-Public Use
  Company Number: DE-PFIZER INC-2010087605

PATIENT
  Age: 26 Year
  Sex: Male

DRUGS (4)
  1. LYRICA [Suspect]
     Indication: TESTICULAR PAIN
     Dosage: 100 MG, DAILY
     Dates: start: 20100101, end: 20100101
  2. LYRICA [Suspect]
     Indication: PROCEDURAL PAIN
     Dosage: 400 MG, DAILY
  3. NORSPAN [Concomitant]
     Indication: PROCEDURAL PAIN
     Dosage: UNK
     Route: 062
     Dates: start: 20100101, end: 20100101
  4. TARGIN [Concomitant]
     Dosage: 10 UG, UNK

REACTIONS (10)
  - ABDOMINAL SYMPTOM [None]
  - ABNORMAL FAECES [None]
  - ANXIETY [None]
  - CHEST DISCOMFORT [None]
  - COLD SWEAT [None]
  - COORDINATION ABNORMAL [None]
  - DIZZINESS [None]
  - HYPERHIDROSIS [None]
  - NAUSEA [None]
  - WITHDRAWAL SYNDROME [None]
